FAERS Safety Report 19175009 (Version 3)
Quarter: 2021Q2

REPORT INFORMATION
  Report Type: Spontaneous
  Country: US (occurrence: US)
  Receive Date: 20210424
  Receipt Date: 20210526
  Transmission Date: 20210717
  Serious: Yes (Hospitalization)
  Sender: FDA-Public Use
  Company Number: US-JNJFOC-20210432771

PATIENT
  Age: 63 Year
  Sex: Male
  Weight: 104.87 kg

DRUGS (1)
  1. TREMFYA [Suspect]
     Active Substance: GUSELKUMAB
     Indication: PSORIASIS
     Route: 065

REACTIONS (5)
  - Drug delivery system malfunction [Unknown]
  - Wrong technique in product usage process [Unknown]
  - Wound [Unknown]
  - Product dose omission issue [Unknown]
  - Psoriasis [Unknown]

NARRATIVE: CASE EVENT DATE: 202103
